FAERS Safety Report 14991170 (Version 1)
Quarter: 2018Q2

REPORT INFORMATION
  Report Type: Spontaneous
  Country: DE (occurrence: DE)
  Receive Date: 20180608
  Receipt Date: 20180608
  Transmission Date: 20180711
  Serious: Yes (Death, Hospitalization)
  Sender: FDA-Public Use
  Company Number: DE-TEVA-2018-DE-902310

PATIENT
  Age: 78 Year
  Sex: Male

DRUGS (18)
  1. XIPAMID [Concomitant]
     Active Substance: XIPAMIDE
     Dosage: 0.5-0-0-0
  2. INSULIN HUMAN [Suspect]
     Active Substance: INSULIN HUMAN
     Dosage: NACH BZ IE, NACH BZ
     Route: 065
  3. SPIRIVA [Concomitant]
     Active Substance: TIOTROPIUM BROMIDE MONOHYDRATE
     Dosage: , 1-0-0-0
  4. SULTANOL [Concomitant]
     Active Substance: ALBUTEROL SULFATE
     Dosage: 3-3-3-0, TROPFEN
     Route: 055
  5. METOCLOPRAMID [Concomitant]
     Active Substance: METOCLOPRAMIDE
     Dosage: 0-1-0-0
  6. ATROVENT [Concomitant]
     Active Substance: IPRATROPIUM BROMIDE
     Dosage: 20-20-20-0, TROPFEN
     Route: 055
  7. METOPROLOL. [Concomitant]
     Active Substance: METOPROLOL
     Dosage: 1-0-0-0
     Route: 065
  8. TAMSULOSIN [Concomitant]
     Active Substance: TAMSULOSIN
     Dosage: 0-0-0-1
  9. PREGABALIN. [Concomitant]
     Active Substance: PREGABALIN
     Dosage: 0-0-0-1
  10. MOVICOL [Concomitant]
     Active Substance: POLYETHYLENE GLYCOL 3350\POTASSIUM CHLORIDE\SODIUM BICARBONATE\SODIUM CHLORIDE
     Dosage: 1-0-0-0, BEUTEL
  11. OXYCODONE [Suspect]
     Active Substance: OXYCODONE
     Dosage: 1-0-1-0
     Route: 065
  12. FUROSEMID [Concomitant]
     Active Substance: FUROSEMIDE
     Dosage: 1-1-0-0
  13. PANTOPRAZOL [Concomitant]
     Active Substance: PANTOPRAZOLE SODIUM
     Dosage: 0-1-0-0
  14. METAMIZOL [Concomitant]
     Active Substance: METAMIZOLE SODIUM
     Dosage: 1-1-1-0
  15. PREDNISOLONE. [Suspect]
     Active Substance: PREDNISOLONE
     Dosage: , 1-0-0-0
     Route: 065
  16. RANITIDIN [Concomitant]
     Active Substance: RANITIDINE HYDROCHLORIDE
     Dosage: 0-0-1-0
  17. FEBUXOSTAT. [Concomitant]
     Active Substance: FEBUXOSTAT
     Dosage: 0-0.5-0-0
  18. TILIDINE W/NALOXONE [Suspect]
     Active Substance: NALOXONE HYDROCHLORIDE\TILIDINE HYDROCHLORIDE
     Dosage: 100|8 MG, 0-1-0-0
     Route: 065

REACTIONS (9)
  - General physical health deterioration [Unknown]
  - Decreased appetite [Unknown]
  - Fatigue [Unknown]
  - Dyspnoea [Unknown]
  - Drug prescribing error [Unknown]
  - Hypoglycaemia [Unknown]
  - Medication error [Unknown]
  - Cold sweat [Unknown]
  - Contraindicated product administered [Unknown]
